FAERS Safety Report 20206274 (Version 1)
Quarter: 2021Q4

REPORT INFORMATION
  Report Type: Spontaneous
  Country: PL (occurrence: PL)
  Receive Date: 20211220
  Receipt Date: 20211220
  Transmission Date: 20220303
  Serious: Yes (Hospitalization)
  Sender: FDA-Public Use
  Company Number: PL-BLUEFISH PHARMACEUTICALS AB-2021BF001353

PATIENT
  Age: 23 Year
  Sex: Female

DRUGS (8)
  1. OLANZAPINE [Suspect]
     Active Substance: OLANZAPINE
     Indication: Psychotic disorder
     Dosage: 20 MILLIGRAM, PER DAY
     Route: 048
  2. OLANZAPINE [Suspect]
     Active Substance: OLANZAPINE
     Dosage: UNK, TABLETS
     Route: 048
  3. PERAZINE [Concomitant]
     Active Substance: PERAZINE
     Dosage: 25 MILLIGRAM
     Route: 048
  4. SERTRALINE [Concomitant]
     Active Substance: SERTRALINE HYDROCHLORIDE
     Dosage: MAXIMUM DOSE OF 100 MH
     Route: 065
  5. PRIDINOL [Concomitant]
     Active Substance: PRIDINOL
     Dosage: 5 MILLIGRAM
     Route: 048
  6. ARIPIPRAZOLE [Concomitant]
     Active Substance: ARIPIPRAZOLE
     Dosage: 30 MILLIGRAM, AFTER REACHING THE MAXIMUM DOSE OF 30
     Route: 048
  7. RISPERIDONE [Concomitant]
     Active Substance: RISPERIDONE
     Dosage: 3 MILLIGRAM
     Route: 048
  8. RISPERIDONE [Concomitant]
     Active Substance: RISPERIDONE
     Dosage: 3 MILLIGRAM
     Route: 048

REACTIONS (4)
  - Drug ineffective [Recovering/Resolving]
  - Electroencephalogram abnormal [Recovering/Resolving]
  - Apathy [Recovering/Resolving]
  - Hypokinesia [Recovering/Resolving]
